FAERS Safety Report 10026250 (Version 2)
Quarter: 2014Q3

REPORT INFORMATION
  Report Type: Spontaneous
  Country: GB (occurrence: GB)
  Receive Date: 20140320
  Receipt Date: 20140721
  Transmission Date: 20150326
  Serious: Yes (Other)
  Sender: FDA-Public Use
  Company Number: GB-TEVA-467522ISR

PATIENT
  Sex: Male
  Weight: 76.2 kg

DRUGS (2)
  1. DOXAZOSIN [Concomitant]
     Active Substance: DOXAZOSIN\DOXAZOSIN MESYLATE
     Indication: PRODUCT USED FOR UNKNOWN INDICATION
     Route: 065
  2. RAMIPRIL. [Suspect]
     Active Substance: RAMIPRIL
     Indication: HYPERTENSION
     Route: 048
     Dates: start: 20090101, end: 20120101

REACTIONS (3)
  - Lacrimation increased [Recovered/Resolved with Sequelae]
  - Parosmia [Recovered/Resolved with Sequelae]
  - Head banging [Recovered/Resolved with Sequelae]

NARRATIVE: CASE EVENT DATE: 20110101
